FAERS Safety Report 26028030 (Version 1)
Quarter: 2025Q4

REPORT INFORMATION
  Report Type: Spontaneous
  Country: US (occurrence: None)
  Receive Date: 20251111
  Receipt Date: 20251111
  Transmission Date: 20260118
  Serious: Yes (unspecified)
  Sender: FDA-CTU
  Company Number: None

PATIENT
  Age: 44 Year
  Sex: Male
  Weight: 110.25 kg

DRUGS (7)
  1. BIMZELX [Suspect]
     Active Substance: BIMEKIZUMAB-BKZX
     Indication: Hidradenitis
     Dates: start: 20251006, end: 20251020
  2. BUSPAR [Suspect]
     Active Substance: BUSPIRONE HYDROCHLORIDE
  3. LUVOX [Suspect]
     Active Substance: FLUVOXAMINE MALEATE
  4. SEROQUEL [Suspect]
     Active Substance: QUETIAPINE FUMARATE
  5. OZEMPIC [Concomitant]
     Active Substance: SEMAGLUTIDE
  6. LISINOPRIL [Concomitant]
     Active Substance: LISINOPRIL
  7. Astorvistatin [Concomitant]

REACTIONS (3)
  - Obsessive-compulsive symptom [None]
  - Anxiety [None]
  - Drug ineffective [None]

NARRATIVE: CASE EVENT DATE: 20251020
